FAERS Safety Report 18602050 (Version 2)
Quarter: 2021Q3

REPORT INFORMATION
  Report Type: Spontaneous
  Country: US (occurrence: US)
  Receive Date: 20201210
  Receipt Date: 20210727
  Transmission Date: 20211014
  Serious: Yes (Other)
  Sender: FDA-Public Use
  Company Number: US-PFIZER INC-2019-06007

PATIENT
  Age: 76 Year
  Sex: Female
  Weight: 62.14 kg

DRUGS (2)
  1. BRAFTOVI [Suspect]
     Active Substance: ENCORAFENIB
     Indication: MALIGNANT MELANOMA
     Dosage: 450 MG, 1X/DAY (6 CAPSULES OF 75MG)
     Dates: start: 20190626
  2. MEKTOVI [Suspect]
     Active Substance: BINIMETINIB
     Indication: MALIGNANT MELANOMA
     Dosage: 45 MG, 2X/DAY (3 TABLETS AT LUNCH, 3 TABLETS BEFORE SUPPER)
     Route: 048
     Dates: start: 20190626

REACTIONS (5)
  - Rash [Unknown]
  - Pyrexia [Recovered/Resolved]
  - Blood glucose decreased [Recovered/Resolved]
  - Fatigue [Recovered/Resolved]
  - Urinary tract infection [Unknown]
